FAERS Safety Report 19588542 (Version 1)
Quarter: 2021Q3

REPORT INFORMATION
  Report Type: Spontaneous
  Country: IN (occurrence: IN)
  Receive Date: 20210721
  Receipt Date: 20210721
  Transmission Date: 20211014
  Serious: Yes (Other)
  Sender: FDA-Public Use
  Company Number: IN-SUN PHARMACEUTICAL INDUSTRIES LTD-2021R1-304876

PATIENT
  Age: 20 Year
  Sex: Female

DRUGS (2)
  1. ONDANSETRON [Suspect]
     Active Substance: ONDANSETRON
     Indication: VOMITING
     Dosage: 4 MILLIGRAM, TID
     Route: 042
  2. PROMETHAZINE [Concomitant]
     Active Substance: PROMETHAZINE HYDROCHLORIDE
     Indication: WERNICKE^S ENCEPHALOPATHY
     Dosage: 25 MILLIGRAM, TID
     Route: 042

REACTIONS (2)
  - Live birth [Unknown]
  - Exposure during pregnancy [Unknown]
